FAERS Safety Report 7097509-1 (Version None)
Quarter: 2010Q4

REPORT INFORMATION
  Report Type: 
  Country: None (occurrence: None)
  Receive Date: 20101111
  Receipt Date: 20101104
  Transmission Date: 20110411
  Serious: Yes (Death, Other)
  Sender: FDA-Public Use
  Company Number: PHEH2008US00460

PATIENT
  Sex: Male

DRUGS (19)
  1. ZOMETA [Suspect]
     Dosage: 4MG MONTHLY
     Dates: start: 20050524, end: 20070425
  2. AVASTIN [Concomitant]
  3. CHEMOTHERAPEUTICS NOS [Concomitant]
  4. PRILOSEC [Concomitant]
  5. HYDROCHLOROTHIAZIDE [Concomitant]
  6. NEXAVAR [Concomitant]
     Dosage: UNK
  7. TOPROL-XL [Concomitant]
     Dosage: UNK
  8. METAMUCIL-2 [Concomitant]
  9. MS CONTIN [Concomitant]
  10. LORTAB [Concomitant]
  11. ZOCOR [Concomitant]
  12. ENTERIC ASPIRIN [Concomitant]
  13. ACETAMINOPHEN AND HYDROCODONE BITARTRATE [Concomitant]
  14. PRED FORTE [Concomitant]
  15. ACULAR ^ALLERGAN^ [Concomitant]
  16. SUMYCIN [Concomitant]
     Dosage: 500 MG, UNK
     Route: 048
  17. VANCENASE [Concomitant]
     Dosage: 42 MCG, UNK
     Route: 045
  18. CLARITIN [Concomitant]
     Dosage: 10 MG, UNK
     Route: 048
  19. CEPHALEXIN [Concomitant]
     Dosage: 500 MG, UNK
     Route: 048

REACTIONS (29)
  - ANXIETY [None]
  - BACK PAIN [None]
  - BONE DENSITY DECREASED [None]
  - BONE DISORDER [None]
  - BONE PAIN [None]
  - CATARACT [None]
  - CEREBRAL ATROPHY [None]
  - CEREBROVASCULAR ACCIDENT [None]
  - CONFUSIONAL STATE [None]
  - CONSTIPATION [None]
  - DEATH [None]
  - DEBRIDEMENT [None]
  - DECREASED APPETITE [None]
  - DEPRESSION [None]
  - DYSPNOEA [None]
  - FATIGUE [None]
  - HYPERTENSION [None]
  - INJURY [None]
  - ORAL PAIN [None]
  - OSTEONECROSIS OF JAW [None]
  - PAIN [None]
  - PAIN IN JAW [None]
  - PERICARDIAL DISEASE [None]
  - PERIODONTAL DISEASE [None]
  - PLEURAL EFFUSION [None]
  - SPINAL OSTEOARTHRITIS [None]
  - TOOTH EXTRACTION [None]
  - TOOTH INFECTION [None]
  - VISUAL ACUITY REDUCED [None]
